FAERS Safety Report 11926909 (Version 1)
Quarter: 2016Q1

REPORT INFORMATION
  Report Type: Spontaneous
  Country: US (occurrence: US)
  Receive Date: 20160119
  Receipt Date: 20160119
  Transmission Date: 20160526
  Serious: No
  Sender: FDA-Public Use
  Company Number: US-GLAXOSMITHKLINE-US2016GSK005285

PATIENT
  Sex: Male

DRUGS (3)
  1. ZOVIRAX [Suspect]
     Active Substance: ACYCLOVIR
     Indication: GENITAL HERPES
  2. ACYCLOVIR. [Suspect]
     Active Substance: ACYCLOVIR
     Indication: GENITAL HERPES
  3. ZOVIRAX [Suspect]
     Active Substance: ACYCLOVIR
     Indication: GENITAL HERPES

REACTIONS (4)
  - Drug dispensing error [Unknown]
  - Drug ineffective [Unknown]
  - Product substitution issue [Unknown]
  - Underdose [Unknown]
